FAERS Safety Report 6617944-2 (Version None)
Quarter: 2010Q1

REPORT INFORMATION
  Report Type: 
  Country: None (occurrence: None)
  Receive Date: 20100308
  Receipt Date: 20100223
  Transmission Date: 20100710
  Serious: Yes (Hospitalization, Disabling, Other)
  Sender: FDA-Public Use
  Company Number: PHHY2010CA04003

PATIENT
  Sex: Female

DRUGS (2)
  1. SANDOSTATIN [Suspect]
     Dosage: 50 MG, UNK
     Route: 058
     Dates: start: 20100112, end: 20100112
  2. SANDOSTATIN LAR [Suspect]

REACTIONS (8)
  - ABDOMINAL PAIN [None]
  - ASTHENIA [None]
  - DIARRHOEA [None]
  - FATIGUE [None]
  - HEPATIC PAIN [None]
  - METASTASES TO LIVER [None]
  - RENAL FAILURE CHRONIC [None]
  - VOMITING [None]
